FAERS Safety Report 17206693 (Version 1)
Quarter: 2019Q4

REPORT INFORMATION
  Report Type: Spontaneous
  Country: US (occurrence: US)
  Receive Date: 20191227
  Receipt Date: 20191227
  Transmission Date: 20200122
  Serious: Yes (Other)
  Sender: FDA-Public Use
  Company Number: US-ALKEM LABORATORIES LIMITED-US-ALKEM-2018-09841

PATIENT

DRUGS (4)
  1. ATACICEPT [Suspect]
     Active Substance: ATACICEPT
     Indication: LUPUS NEPHRITIS
     Dosage: 150 MG, BID
     Route: 058
  2. MYCOPHENOLATE MOFETIL. [Suspect]
     Active Substance: MYCOPHENOLATE MOFETIL
     Dosage: INCREASED BY 1 G/DAY EACH WEEK TO 3 G DAILY
     Route: 048
  3. MYCOPHENOLATE MOFETIL. [Suspect]
     Active Substance: MYCOPHENOLATE MOFETIL
     Indication: LUPUS NEPHRITIS
     Dosage: 500 MG, BID
     Route: 048
  4. PREDNISONE. [Suspect]
     Active Substance: PREDNISONE
     Indication: LUPUS NEPHRITIS
     Dosage: THE LESSER OF 0.8 MG/KG/DAY OR 60 MG/DAY
     Route: 065

REACTIONS (5)
  - Empyema [Unknown]
  - Pneumonia haemophilus [Unknown]
  - Blood immunoglobulin G decreased [Unknown]
  - Pneumothorax [Unknown]
  - Sepsis [Unknown]
